FAERS Safety Report 16050559 (Version 1)
Quarter: 2019Q1

REPORT INFORMATION
  Report Type: Spontaneous
  Country: US (occurrence: US)
  Receive Date: 20190308
  Receipt Date: 20190308
  Transmission Date: 20190418
  Serious: Yes (Death)
  Sender: FDA-Public Use
  Company Number: US-009507513-1903USA002145

PATIENT
  Age: 55 Year
  Sex: Female

DRUGS (9)
  1. DULOXETINE HYDROCHLORIDE. [Suspect]
     Active Substance: DULOXETINE HYDROCHLORIDE
     Dosage: EXTENDED RELEASE; CAUSE RANK: 2
     Route: 048
  2. LEVOTHYROXINE SODIUM. [Suspect]
     Active Substance: LEVOTHYROXINE SODIUM
     Dosage: CAUSE RANK: 10
     Route: 048
  3. METFORMIN [Suspect]
     Active Substance: METFORMIN HYDROCHLORIDE
     Dosage: CAUSE RANK: 8
     Route: 048
  4. PRINIVIL [Suspect]
     Active Substance: LISINOPRIL
     Dosage: CAUSE RANK: 9
     Route: 048
  5. QUETIAPINE FUMARATE. [Suspect]
     Active Substance: QUETIAPINE FUMARATE
     Dosage: CAUSE RANK: 5
     Route: 048
  6. TOPIRAMATE. [Suspect]
     Active Substance: TOPIRAMATE
     Dosage: CAUSE RANK: 7
     Route: 048
  7. CLONAZEPAM. [Suspect]
     Active Substance: CLONAZEPAM
     Dosage: CAUSE RANK: 1
     Route: 048
  8. PROPRANOLOL HYDROCHLORIDE. [Suspect]
     Active Substance: PROPRANOLOL HYDROCHLORIDE
     Dosage: CAUSE RANK: 3
     Route: 048
  9. OXCARBAZEPINE. [Suspect]
     Active Substance: OXCARBAZEPINE
     Dosage: CAUSE RANK: 4
     Route: 048

REACTIONS (1)
  - Intentional product misuse [Fatal]
